FAERS Safety Report 9668377 (Version 3)
Quarter: 2014Q2

REPORT INFORMATION
  Report Type: Spontaneous
  Country: US (occurrence: US)
  Receive Date: 20131104
  Receipt Date: 20140625
  Transmission Date: 20141212
  Serious: Yes (Congenital Anomaly)
  Sender: FDA-Public Use
  Company Number: US-009507513-1311USA000016

PATIENT
  Sex: Male
  Weight: 3.49 kg

DRUGS (5)
  1. ISENTRESS [Suspect]
     Indication: ANTIVIRAL TREATMENT
     Dosage: UNK
     Route: 064
     Dates: start: 20111018, end: 20111026
  2. PREZISTA [Suspect]
     Indication: ANTIVIRAL TREATMENT
     Dosage: UNK
     Route: 064
     Dates: start: 20111018, end: 20111026
  3. RETROVIR [Suspect]
     Indication: ANTIVIRAL TREATMENT
     Dosage: UNK
     Route: 064
     Dates: start: 20111026, end: 20111026
  4. TRUVADA [Suspect]
     Indication: ANTIVIRAL TREATMENT
     Dosage: 1 DF, UNK
     Route: 064
     Dates: start: 20111018, end: 20111026
  5. NORVIR [Suspect]
     Indication: ANTIVIRAL TREATMENT
     Dosage: UNK
     Route: 064
     Dates: start: 20111018, end: 20111026

REACTIONS (2)
  - Congenital mitral valve incompetence [Unknown]
  - Foetal exposure during pregnancy [Recovered/Resolved]
